FAERS Safety Report 14751740 (Version 3)
Quarter: 2018Q4

REPORT INFORMATION
  Report Type: Report from Study
  Country: FR (occurrence: FR)
  Receive Date: 20180412
  Receipt Date: 20181220
  Transmission Date: 20190204
  Serious: Yes (Death, Other)
  Sender: FDA-Public Use
  Company Number: FR-BRISTOL-MYERS SQUIBB COMPANY-BMS-2017-113794

PATIENT
  Age: 78 Year
  Sex: Male

DRUGS (1)
  1. NIVOLUMAB [Suspect]
     Active Substance: NIVOLUMAB
     Indication: LUNG NEOPLASM MALIGNANT
     Dosage: 200 MG, Q2WK
     Route: 042
     Dates: start: 20170802, end: 20171122

REACTIONS (3)
  - Iron deficiency anaemia [Unknown]
  - Malignant neoplasm progression [Fatal]
  - Haemoptysis [Unknown]

NARRATIVE: CASE EVENT DATE: 20171205
